FAERS Safety Report 6006148-2 (Version None)
Quarter: 2008Q4

REPORT INFORMATION
  Report Type: 
  Country: None (occurrence: None)
  Receive Date: 20081217
  Receipt Date: 20080915
  Transmission Date: 20090506
  Serious: No
  Sender: FDA-Public Use
  Company Number: US-BAUSCH-2008BL004017

PATIENT
  Age: 59 Year
  Sex: Female

DRUGS (11)
  1. ZYLET [Suspect]
     Indication: OFF LABEL USE
     Route: 047
     Dates: start: 20080710, end: 20080719
  2. ZYLET [Suspect]
     Route: 047
     Dates: start: 20080710, end: 20080719
  3. ZYLET [Suspect]
     Route: 047
     Dates: start: 20080720, end: 20080808
  4. ZYLET [Suspect]
     Route: 047
     Dates: start: 20080720, end: 20080808
  5. ZYLET [Suspect]
     Route: 047
     Dates: start: 20080809, end: 20080815
  6. ZYLET [Suspect]
     Route: 047
     Dates: start: 20080809, end: 20080815
  7. ZYLET [Suspect]
     Route: 047
     Dates: start: 20080816, end: 20080903
  8. ZYLET [Suspect]
     Route: 047
     Dates: start: 20080816, end: 20080903
  9. CALCIUM [Concomitant]
  10. VITAMIN B COMPLEX CAP [Concomitant]
  11. XANAX /USA/ [Concomitant]
     Indication: PANIC ATTACK
     Route: 048

REACTIONS (3)
  - DACRYOSTENOSIS ACQUIRED [None]
  - DRUG INEFFECTIVE FOR UNAPPROVED INDICATION [None]
  - LACRIMATION INCREASED [None]
